FAERS Safety Report 5816204-7 (Version None)
Quarter: 2008Q3

REPORT INFORMATION
  Report Type: 
  Country: None (occurrence: None)
  Receive Date: 20080721
  Receipt Date: 20080714
  Transmission Date: 20090109
  Serious: Yes (Hospitalization)
  Sender: FDA-Public Use
  Company Number: B0528575A

PATIENT
  Age: 9 Year
  Sex: Male
  Weight: 26.5 kg

DRUGS (4)
  1. ZOVIRAX [Suspect]
     Indication: HERPES ZOSTER
     Route: 048
     Dates: start: 20080626, end: 20080629
  2. ZADITEN [Suspect]
     Indication: HERPES ZOSTER
     Route: 065
     Dates: start: 20080626, end: 20080630
  3. CEFTERAM [Suspect]
     Indication: PHARYNGITIS
     Dosage: 300MG THREE TIMES PER DAY
     Route: 048
     Dates: start: 20080628, end: 20080630
  4. ZOVIRAX [Concomitant]
     Dosage: 450MG PER DAY
     Route: 042
     Dates: start: 20080630

REACTIONS (8)
  - ASPARTATE AMINOTRANSFERASE INCREASED [None]
  - BLOOD CREATINE PHOSPHOKINASE INCREASED [None]
  - BLOOD LACTATE DEHYDROGENASE INCREASED [None]
  - BODY TEMPERATURE [None]
  - DISTURBANCE IN ATTENTION [None]
  - MYALGIA [None]
  - PAIN IN EXTREMITY [None]
  - RHABDOMYOLYSIS [None]
